FAERS Safety Report 5962136-3 (Version None)
Quarter: 2008Q4

REPORT INFORMATION
  Report Type: 
  Country: None (occurrence: None)
  Receive Date: 20081121
  Receipt Date: 20081112
  Transmission Date: 20090506
  Serious: Yes (Other)
  Sender: FDA-Public Use
  Company Number: US-JNJCH-2008054566

PATIENT
  Age: 18 Month
  Sex: Male

DRUGS (1)
  1. BENADRYL [Suspect]
     Indication: HYPERSENSITIVITY
     Dosage: TEXT:UNSPECIFIED
     Route: 048

REACTIONS (5)
  - ASTHMA [None]
  - CARDIAC DISORDER [None]
  - CARDIAC PERFORATION [None]
  - TYPE 1 DIABETES MELLITUS [None]
  - WRONG DRUG ADMINISTERED [None]
